APPROVED DRUG PRODUCT: SODIUM ACETATE
Active Ingredient: SODIUM ACETATE
Strength: 100MEQ/50ML (2MEQ/ML)
Dosage Form/Route: SOLUTION;INTRAVENOUS
Application: A216920 | Product #002 | TE Code: AP
Applicant: HIKMA PHARMACEUTICALS USA INC
Approved: Mar 15, 2024 | RLD: No | RS: No | Type: RX